FAERS Safety Report 4350675-0 (Version None)
Quarter: 2004Q2

REPORT INFORMATION
  Report Type: 
  Country: None (occurrence: None)
  Receive Date: 20040427
  Receipt Date: 20040415
  Transmission Date: 20050107
  Serious: Yes (Hospitalization)
  Sender: FDA-Public Use
  Company Number: MK200404-0013-1

PATIENT
  Age: 22 Year
  Sex: Male

DRUGS (2)
  1. ANAFRANIL CAP [Suspect]
     Indication: DEPRESSION
     Dosage: 75MG, DAILY
     Dates: start: 20030804, end: 20040107
  2. ALCOHOL [Suspect]

REACTIONS (3)
  - ALCOHOLISM [None]
  - GRAND MAL CONVULSION [None]
  - HEAD INJURY [None]
